FAERS Safety Report 9931756 (Version 1)
Quarter: 2014Q1

REPORT INFORMATION
  Report Type: Spontaneous
  Country: US (occurrence: None)
  Receive Date: 20140227
  Receipt Date: 20140227
  Transmission Date: 20141002
  Serious: Yes (Disabling)
  Sender: FDA-Public Use
  Company Number: None

PATIENT
  Age: 22 Year
  Sex: Male
  Weight: 90.72 kg

DRUGS (3)
  1. ESCITALOPRAM [Suspect]
     Indication: DEPRESSION
     Route: 048
     Dates: start: 20130717, end: 20140226
  2. ESCITALOPRAM [Suspect]
     Indication: ANXIETY
     Route: 048
     Dates: start: 20130717, end: 20140226
  3. ESCITALOPRAM [Suspect]
     Indication: OBSESSIVE-COMPULSIVE DISORDER
     Route: 048
     Dates: start: 20130717, end: 20140226

REACTIONS (10)
  - Withdrawal syndrome [None]
  - Tachycardia [None]
  - Hypertension [None]
  - Nausea [None]
  - Dizziness [None]
  - Anxiety [None]
  - Disturbance in attention [None]
  - Memory impairment [None]
  - Emotional disorder [None]
  - Therapy cessation [None]
